FAERS Safety Report 4964942-0 (Version None)
Quarter: 2006Q2

REPORT INFORMATION
  Report Type: 
  Country: None (occurrence: None)
  Receive Date: 20060403
  Receipt Date: 20060320
  Transmission Date: 20061013
  Serious: Yes (Hospitalization)
  Sender: FDA-Public Use
  Company Number: 200108-1623

PATIENT
  Age: 35 Year
  Sex: Male

DRUGS (4)
  1. ACTIFED [Suspect]
     Indication: CHRONIC SINUSITIS
     Dosage: 1 BOX PER MONTH, ORAL
     Route: 048
     Dates: start: 19980101
  2. ACTIFED [Suspect]
     Indication: CHRONIC SINUSITIS
     Dosage: 1 BOX PER MONTH, ORAL
     Route: 048
     Dates: start: 19980101
  3. PRAZEPAM [Concomitant]
  4. HOMEOPATIC PREPARATION (HOMEOPATIC PREPARATION) [Concomitant]

REACTIONS (7)
  - CEREBRAL HAEMATOMA [None]
  - CONVULSION [None]
  - HEADACHE [None]
  - HYPERAESTHESIA [None]
  - MENINGEAL DISORDER [None]
  - PERSONALITY CHANGE [None]
  - TINNITUS [None]
